FAERS Safety Report 9481483 (Version 1)
Quarter: 2013Q3

REPORT INFORMATION
  Report Type: Spontaneous
  Country: US (occurrence: US)
  Receive Date: 20130828
  Receipt Date: 20130828
  Transmission Date: 20140515
  Serious: Yes (Hospitalization, Other)
  Sender: FDA-Public Use
  Company Number: US-AMGEN-KDL171114

PATIENT
  Age: 57 Year
  Sex: Female

DRUGS (2)
  1. ENBREL [Suspect]
     Indication: PSORIATIC ARTHROPATHY
     Dosage: 50 MG, QWK
     Route: 058
     Dates: start: 20031021
  2. ENBREL [Suspect]
     Indication: PSORIASIS

REACTIONS (8)
  - Back disorder [Recovered/Resolved]
  - Herpes zoster [Recovered/Resolved]
  - Urinary incontinence [Unknown]
  - Condition aggravated [Unknown]
  - Hypoaesthesia [Unknown]
  - Urinary tract infection [Unknown]
  - Paraesthesia [Unknown]
  - Local swelling [Unknown]
